FAERS Safety Report 14901079 (Version 1)
Quarter: 2018Q2

REPORT INFORMATION
  Report Type: Report from Study
  Country: JP (occurrence: JP)
  Receive Date: 20180516
  Receipt Date: 20180516
  Transmission Date: 20180711
  Serious: Yes (Hospitalization, Other)
  Sender: FDA-Public Use
  Company Number: JP-VIIV HEALTHCARE LIMITED-A20016625

PATIENT
  Age: 32 Year
  Sex: Male

DRUGS (7)
  1. VIRAMUNE [Concomitant]
     Active Substance: NEVIRAPINE
     Dosage: 400 MG, 1D
     Dates: start: 20000619, end: 20001112
  2. CRIXIVAN [Suspect]
     Active Substance: INDINAVIR SULFATE
     Indication: HIV INFECTION
     Dosage: 2.4 G, 1D
     Route: 048
     Dates: start: 20001113, end: 20010115
  3. VIRAMUNE [Concomitant]
     Active Substance: NEVIRAPINE
     Indication: HIV INFECTION
     Dosage: 200 MG, 1D
     Dates: start: 20000605, end: 20000618
  4. TENOFOVIR DISOPROXIL FUMARATE. [Concomitant]
     Active Substance: TENOFOVIR DISOPROXIL FUMARATE
     Dosage: UNK
  5. ZIDOVUDINE. [Suspect]
     Active Substance: ZIDOVUDINE
     Indication: HIV INFECTION
     Dosage: 400 MG, 1D
     Route: 048
     Dates: start: 20000605, end: 20010115
  6. GASTER [Concomitant]
     Active Substance: FAMOTIDINE
     Indication: ABDOMINAL DISCOMFORT
     Dosage: 20 MG, BID
     Dates: start: 20000401
  7. EPIVIR [Suspect]
     Active Substance: LAMIVUDINE
     Indication: HIV INFECTION
     Dosage: 150 MG, BID
     Route: 048
     Dates: start: 20000605, end: 20010115

REACTIONS (11)
  - Drug resistance [Unknown]
  - Alanine aminotransferase increased [Unknown]
  - Malaise [Unknown]
  - Hepatitis B [Recovering/Resolving]
  - Immune reconstitution inflammatory syndrome [Unknown]
  - Aspartate aminotransferase increased [Unknown]
  - Blood bilirubin increased [Unknown]
  - Hepatitis B DNA assay positive [Unknown]
  - Viral mutation identified [Unknown]
  - Gamma-glutamyltransferase increased [Unknown]
  - Abdominal pain upper [Unknown]

NARRATIVE: CASE EVENT DATE: 200010
